FAERS Safety Report 6815607-1 (Version None)
Quarter: 2010Q3

REPORT INFORMATION
  Report Type: 
  Country: None (occurrence: None)
  Receive Date: 20100702
  Receipt Date: 20100623
  Transmission Date: 20110219
  Serious: Yes (Other)
  Sender: FDA-Public Use
  Company Number: BR-ABBOTT-10P-020-0653264-00

PATIENT
  Age: 10 Year
  Sex: Female

DRUGS (4)
  1. VALPAKINE [Suspect]
     Indication: EPILEPSY
     Dosage: 5.5 UNIT DAILY
     Route: 048
     Dates: start: 20080101
  2. VALPAKINE [Suspect]
     Dosage: 2 UNIT DAILY
     Route: 048
     Dates: start: 20030101
  3. CARBAMAZEPINE [Concomitant]
     Indication: PRODUCT USED FOR UNKNOWN INDICATION
     Dates: start: 20080101
  4. RIVOTRIL [Concomitant]
     Indication: PRODUCT USED FOR UNKNOWN INDICATION
     Dates: start: 20080101

REACTIONS (2)
  - CONVULSION [None]
  - FALL [None]
